FAERS Safety Report 10238687 (Version 1)
Quarter: 2014Q2

REPORT INFORMATION
  Report Type: Spontaneous
  Country: US (occurrence: US)
  Receive Date: 20140616
  Receipt Date: 20140616
  Transmission Date: 20141212
  Serious: Yes (Other)
  Sender: FDA-Public Use
  Company Number: US-ENDO PHARMACEUTICALS INC.-OPCR20140159

PATIENT
  Age: 55 Year
  Sex: Male

DRUGS (3)
  1. OPANA ER 40MG [Suspect]
     Indication: PRODUCT USED FOR UNKNOWN INDICATION
     Route: 048
     Dates: start: 2012
  2. OPANA ER 40MG [Suspect]
     Route: 048
  3. OPANA ER 40MG [Suspect]
     Route: 048
     Dates: start: 201402, end: 201403

REACTIONS (9)
  - Drug dependence [Recovered/Resolved]
  - Faeces discoloured [Not Recovered/Not Resolved]
  - Renal pain [Not Recovered/Not Resolved]
  - Pain in extremity [Not Recovered/Not Resolved]
  - Burning sensation [Not Recovered/Not Resolved]
  - Muscle spasms [Not Recovered/Not Resolved]
  - Rhonchi [Not Recovered/Not Resolved]
  - Change of bowel habit [Not Recovered/Not Resolved]
  - Dyspnoea [Not Recovered/Not Resolved]
